FAERS Safety Report 20859604 (Version 3)
Quarter: 2022Q3

REPORT INFORMATION
  Report Type: Report from Study
  Country: ES (occurrence: None)
  Receive Date: 20220523
  Receipt Date: 20220923
  Transmission Date: 20221027
  Serious: Yes (Hospitalization)
  Sender: FDA-Public Use
  Company Number: ES-ROCHE-3100553

PATIENT
  Age: 82 Year
  Sex: Male
  Weight: 59.8 kg

DRUGS (17)
  1. ATEZOLIZUMAB [Suspect]
     Active Substance: ATEZOLIZUMAB
     Indication: Hepatocellular carcinoma
     Dosage: 07/APR/2022 AT 11;00 WAS LAST DATE OF STUDY DRUG PRIOR TO AE
     Route: 042
     Dates: start: 20210804
  2. BEVACIZUMAB [Suspect]
     Active Substance: BEVACIZUMAB
     Indication: Hepatocellular carcinoma
     Dosage: 07/APR/2022 AT 12:25 WAS LAST DATE OF STUDY DRUG PRIOR TO AE
     Route: 042
     Dates: start: 20210804
  3. LACTITOL [Concomitant]
     Active Substance: LACTITOL
     Dates: start: 20220519
  4. METFORMIN [Concomitant]
     Active Substance: METFORMIN HYDROCHLORIDE
     Indication: Diabetes mellitus
  5. ACETAMINOPHEN [Concomitant]
     Active Substance: ACETAMINOPHEN
     Route: 048
     Dates: start: 20211025
  6. MAGNESIUM [Concomitant]
     Active Substance: MAGNESIUM
     Indication: Arthralgia
     Dates: start: 20210914
  7. CALCIUM CARBONATE [Concomitant]
     Active Substance: CALCIUM CARBONATE
     Dates: start: 20211116
  8. METHYLPREDNISOLONE [Concomitant]
     Active Substance: METHYLPREDNISOLONE
     Route: 048
     Dates: start: 20211110, end: 20211208
  9. METHYLPREDNISOLONE [Concomitant]
     Active Substance: METHYLPREDNISOLONE
     Dates: start: 20211209
  10. CALCIUM CARBONATE [Concomitant]
     Active Substance: CALCIUM CARBONATE
     Route: 048
     Dates: start: 20211116
  11. TRAMADOL [Concomitant]
     Active Substance: TRAMADOL
     Route: 048
     Dates: start: 20220307
  12. OMEPRAZOLE [Concomitant]
     Active Substance: OMEPRAZOLE
     Route: 048
     Dates: start: 20220307
  13. FENTANYL [Concomitant]
     Active Substance: FENTANYL
     Indication: Arthralgia
     Route: 062
     Dates: start: 20220307
  14. FENTANYL [Concomitant]
     Active Substance: FENTANYL
     Route: 062
     Dates: start: 20220428
  15. FENTANYL [Concomitant]
     Active Substance: FENTANYL
     Route: 062
     Dates: end: 20220427
  16. FENTANYL [Concomitant]
     Active Substance: FENTANYL
     Dates: start: 20220519
  17. TRAZODONE [Concomitant]
     Active Substance: TRAZODONE HYDROCHLORIDE
     Indication: Prophylaxis
     Route: 048
     Dates: start: 20220530, end: 20220601

REACTIONS (1)
  - Hip fracture [Recovering/Resolving]

NARRATIVE: CASE EVENT DATE: 20220517
